FAERS Safety Report 4767300-7 (Version None)
Quarter: 2005Q3

REPORT INFORMATION
  Report Type: 
  Country: None (occurrence: None)
  Receive Date: 20050913
  Receipt Date: 20050518
  Transmission Date: 20060218
  Serious: Yes (Death)
  Sender: FDA-Public Use
  Company Number: AU-GLAXOSMITHKLINE-B0382274A

PATIENT
  Age: 63 Year
  Sex: Female

DRUGS (12)
  1. AVANDIA [Suspect]
     Indication: DIABETES MELLITUS
     Dosage: 4MG PER DAY
     Route: 048
  2. DIABEX [Concomitant]
     Dosage: 1G THREE TIMES PER DAY
     Route: 065
  3. KLARICID [Concomitant]
     Dosage: 250MG TWICE PER DAY
     Route: 065
  4. AMARYL [Concomitant]
     Dosage: 4MG PER DAY
     Route: 065
  5. NEXIUM [Concomitant]
     Dosage: 20MG AS REQUIRED
     Route: 065
  6. GLYBURIDE [Concomitant]
     Dosage: 5MG SEE DOSAGE TEXT
     Route: 065
  7. GLUCOBAY [Concomitant]
     Dosage: 100MG THREE TIMES PER DAY
     Route: 065
  8. EFFEXOR XR [Concomitant]
     Dosage: 150MG IN THE MORNING
     Route: 065
  9. AVAPRO HCT [Concomitant]
     Dosage: 1U IN THE MORNING
  10. ELCON [Concomitant]
     Route: 065
     Dates: start: 20050407
  11. MOBIC [Concomitant]
     Dosage: 15MG AS REQUIRED
     Route: 065
     Dates: start: 20050330
  12. FLUVAX [Concomitant]
     Route: 065

REACTIONS (9)
  - CHEST DISCOMFORT [None]
  - CIRCULATORY COLLAPSE [None]
  - DEATH [None]
  - DRUG INEFFECTIVE [None]
  - DYSPEPSIA [None]
  - DYSPNOEA [None]
  - LOSS OF CONSCIOUSNESS [None]
  - MYOCARDIAL INFARCTION [None]
  - RASH GENERALISED [None]
